FAERS Safety Report 20585120 (Version 2)
Quarter: 2022Q1

REPORT INFORMATION
  Report Type: Spontaneous
  Country: None (occurrence: US)
  Receive Date: 20220311
  Receipt Date: 20220311
  Transmission Date: 20220423
  Serious: No
  Sender: FDA-Public Use
  Company Number: US-Ascend Therapeutics US, LLC-2126702

PATIENT
  Age: 64 Year
  Sex: Female
  Weight: 47.727 kg

DRUGS (4)
  1. BINOSTO [Suspect]
     Active Substance: ALENDRONATE SODIUM
     Indication: Osteoporosis
     Route: 065
     Dates: start: 202106
  2. BINOSTO [Suspect]
     Active Substance: ALENDRONATE SODIUM
     Route: 065
     Dates: start: 202106
  3. Calcium and vit d supplement(ERGOCALCIFEROL, CALCIUM PHOSPHATE, CALCIU [Concomitant]
     Route: 065
  4. LATANOPROST [Concomitant]
     Active Substance: LATANOPROST
     Route: 065

REACTIONS (3)
  - Product dose omission issue [None]
  - Product use issue [None]
  - Product availability issue [None]

NARRATIVE: CASE EVENT DATE: 20210101
